FAERS Safety Report 21791471 (Version 2)
Quarter: 2023Q1

REPORT INFORMATION
  Report Type: Report from Study
  Country: US (occurrence: US)
  Receive Date: 20221228
  Receipt Date: 20230131
  Transmission Date: 20230418
  Serious: Yes (Other)
  Sender: FDA-Public Use
  Company Number: US-ABBVIE-4251464

PATIENT
  Age: 39 Year
  Sex: Female

DRUGS (2)
  1. SKYRIZI [Suspect]
     Active Substance: RISANKIZUMAB-RZAA
     Indication: Psoriasis
     Route: 058
  2. SKYRIZI [Suspect]
     Active Substance: RISANKIZUMAB-RZAA
     Indication: Psoriasis

REACTIONS (4)
  - Tenoplasty [Unknown]
  - Impaired driving ability [Unknown]
  - Tenoplasty [Unknown]
  - Postoperative wound complication [Unknown]

NARRATIVE: CASE EVENT DATE: 20221001
